FAERS Safety Report 7720115-X (Version None)
Quarter: 2011Q3

REPORT INFORMATION
  Report Type: 
  Country: None (occurrence: None)
  Receive Date: 20110817
  Receipt Date: 20101029
  Transmission Date: 20111222
  Serious: Yes (Hospitalization)
  Sender: FDA-Public Use
  Company Number: 20108937

PATIENT
  Sex: Female

DRUGS (1)
  1. LIORESAL [Suspect]
     Indication: MUSCLE SPASTICITY
     Dosage: 290.2 MCG, DAILY, INTRATHECAL
     Route: 037

REACTIONS (2)
  - HOSPITALISATION [None]
  - URINARY TRACT INFECTION [None]
